FAERS Safety Report 25014175 (Version 1)
Quarter: 2025Q1

REPORT INFORMATION
  Report Type: Spontaneous
  Country: FR (occurrence: FR)
  Receive Date: 20250226
  Receipt Date: 20250226
  Transmission Date: 20250408
  Serious: Yes (Other)
  Sender: MYLAN
  Company Number: FR-OTSUKA-2025_000614

PATIENT
  Age: 70 Year
  Sex: Female

DRUGS (6)
  1. ARIPIPRAZOLE [Suspect]
     Active Substance: ARIPIPRAZOLE
     Indication: Product used for unknown indication
  2. ABILIFY [Suspect]
     Active Substance: ARIPIPRAZOLE
     Indication: Depression
     Dosage: 15 MILLIGRAM, QD (IN THE MORNING)
     Dates: start: 201201
  3. ABILIFY [Suspect]
     Active Substance: ARIPIPRAZOLE
  4. MIRTAZAPINE [Concomitant]
     Active Substance: MIRTAZAPINE
     Indication: Depression
     Dosage: UNK UNK, QD (IN THE EVENING)
     Dates: start: 2012
  5. RISPERDAL [Concomitant]
     Active Substance: RISPERIDONE
     Indication: Product used for unknown indication
  6. CYAMEMAZINE [Concomitant]
     Active Substance: CYAMEMAZINE
     Indication: Product used for unknown indication

REACTIONS (11)
  - Tooth extraction [Unknown]
  - Neuroleptic malignant syndrome [Unknown]
  - Stress [Unknown]
  - Loss of personal independence in daily activities [Unknown]
  - Decreased interest [Unknown]
  - Malaise [Unknown]
  - Fear [Not Recovered/Not Resolved]
  - Anxiety [Not Recovered/Not Resolved]
  - Fatigue [Not Recovered/Not Resolved]
  - Therapy cessation [Unknown]
  - Off label use [Unknown]
